FAERS Safety Report 23361593 (Version 1)
Quarter: 2024Q1

REPORT INFORMATION
  Report Type: Spontaneous
  Country: US (occurrence: US)
  Receive Date: 20240103
  Receipt Date: 20240103
  Transmission Date: 20240410
  Serious: No
  Sender: FDA-Public Use
  Company Number: US-PFIZER INC-202300454255

PATIENT
  Age: 90 Year

DRUGS (1)
  1. PAXLOVID [Suspect]
     Active Substance: NIRMATRELVIR\RITONAVIR
     Indication: COVID-19 treatment
     Dosage: UNK UNK, 2X/DAY
     Dates: start: 202312

REACTIONS (6)
  - Dyspnoea [Recovered/Resolved]
  - Speech disorder [Unknown]
  - Visual impairment [Unknown]
  - Illness [Unknown]
  - Panic reaction [Unknown]
  - Incorrect dose administered [Unknown]

NARRATIVE: CASE EVENT DATE: 20231201
